FAERS Safety Report 25449834 (Version 3)
Quarter: 2025Q3

REPORT INFORMATION
  Report Type: Spontaneous
  Country: JP (occurrence: JP)
  Receive Date: 20250618
  Receipt Date: 20250709
  Transmission Date: 20251021
  Serious: Yes (Death, Life-Threatening)
  Sender: ROCHE
  Company Number: JP-CHUGAI-2025013955

PATIENT
  Age: 67 Year
  Sex: Female
  Weight: 69.3 kg

DRUGS (5)
  1. POLIVY [Suspect]
     Active Substance: POLATUZUMAB VEDOTIN-PIIQ
     Indication: Diffuse large B-cell lymphoma
     Dosage: UNK
     Route: 042
     Dates: start: 20241105, end: 202412
  2. CYCLOPHOSPHAMIDE [Concomitant]
     Active Substance: CYCLOPHOSPHAMIDE
     Indication: Diffuse large B-cell lymphoma
     Route: 042
     Dates: start: 20241105
  3. DOXORUBICIN HYDROCHLORIDE [Concomitant]
     Active Substance: DOXORUBICIN HYDROCHLORIDE
     Indication: Diffuse large B-cell lymphoma
     Route: 042
     Dates: start: 20241105
  4. PREDNISOLONE [Concomitant]
     Active Substance: PREDNISOLONE
  5. RITUXIMAB [Concomitant]
     Active Substance: RITUXIMAB

REACTIONS (3)
  - Septic shock [Fatal]
  - White blood cell count decreased [Not Recovered/Not Resolved]
  - Diffuse large B-cell lymphoma [Fatal]

NARRATIVE: CASE EVENT DATE: 20241204
